FAERS Safety Report 8849830 (Version 1)
Quarter: 2012Q4

REPORT INFORMATION
  Report Type: 
  Country: US (occurrence: US)
  Receive Date: 20121019
  Receipt Date: 20121019
  Transmission Date: 20130627
  Serious: Yes (Other)
  Sender: FDA-Public Use
  Company Number: US-ROCHE-1133350

PATIENT
  Sex: Female

DRUGS (10)
  1. XELODA [Suspect]
     Indication: BREAST CANCER FEMALE
     Route: 065
  2. CYTOXAN [Concomitant]
     Route: 065
  3. ADRIAMYCIN [Concomitant]
     Route: 065
  4. TAMOXIFEN [Concomitant]
  5. AREDIA [Concomitant]
  6. AROMASIN [Concomitant]
  7. TAXOL [Concomitant]
     Route: 065
     Dates: start: 19990129
  8. TAXOL [Concomitant]
     Dosage: dosage lowered
     Route: 065
     Dates: start: 19990422, end: 19990701
  9. COUMADIN [Concomitant]
     Route: 065
     Dates: start: 19990222, end: 19990325
  10. GEMZAR [Concomitant]
     Route: 065
     Dates: start: 200001, end: 200102

REACTIONS (2)
  - Disease progression [Unknown]
  - Pleural effusion [Unknown]
